FAERS Safety Report 9873858 (Version 2)
Quarter: 2014Q1

REPORT INFORMATION
  Report Type: Other
  Country: US (occurrence: US)
  Receive Date: 20140206
  Receipt Date: 20140206
  Transmission Date: 20141002
  Serious: No
  Sender: FDA-Public Use
  Company Number: US-ACORDA-ACO_33686_2013

PATIENT
  Age: 55 Year
  Sex: Female

DRUGS (3)
  1. AMPYRA [Suspect]
     Indication: PRODUCT USED FOR UNKNOWN INDICATION
     Dosage: 10 MG, BID
     Dates: start: 201208, end: 201212
  2. REBIF [Concomitant]
     Indication: MULTIPLE SCLEROSIS
     Dosage: 44 MCG, THREE TIMES A WEEK
     Route: 058
     Dates: start: 201202
  3. ESTROGEN NOS [Concomitant]
     Indication: PRODUCT USED FOR UNKNOWN INDICATION
     Dosage: UNK, WEEKLY
     Route: 062
     Dates: start: 2008

REACTIONS (1)
  - Myalgia [Recovered/Resolved]
